FAERS Safety Report 8992406 (Version 1)
Quarter: 2012Q4

REPORT INFORMATION
  Report Type: 
  Country: CH (occurrence: CH)
  Receive Date: 20121231
  Receipt Date: 20121231
  Transmission Date: 20130627
  Serious: Yes (Other)
  Sender: FDA-Public Use
  Company Number: CH-BRISTOL-MYERS SQUIBB COMPANY-17238270

PATIENT
  Age: 32 Year
  Sex: Female

DRUGS (2)
  1. ORENCIA [Suspect]
     Indication: RHEUMATOID ARTHRITIS
     Dosage: last inj:7Oct11
     Dates: start: 201105, end: 20111007
  2. EFEXOR [Suspect]
     Dates: start: 2011, end: 201110

REACTIONS (2)
  - Twin pregnancy [Recovered/Resolved]
  - Abortion induced [Unknown]
